FAERS Safety Report 4909756-2 (Version None)
Quarter: 2006Q1

REPORT INFORMATION
  Report Type: 
  Country: None (occurrence: None)
  Receive Date: 20060208
  Receipt Date: 20060119
  Transmission Date: 20060701
  Serious: Yes (Hospitalization, Disabling)
  Sender: FDA-Public Use
  Company Number: 408618

PATIENT
  Age: 15 Year
  Sex: Female
  Weight: 55.8 kg

DRUGS (2)
  1. ACCUTANE [Suspect]
     Indication: ACNE
     Dosage: 20 MG DAILY ORAL
     Route: 048
     Dates: start: 20020105, end: 20020714
  2. VALTREX [Concomitant]

REACTIONS (51)
  - ACTIVITIES OF DAILY LIVING IMPAIRED [None]
  - ANHEDONIA [None]
  - ANXIETY [None]
  - AUTOIMMUNE HEPATITIS [None]
  - BLOOD CHOLESTEROL INCREASED [None]
  - BLOOD POTASSIUM INCREASED [None]
  - CARBON DIOXIDE DECREASED [None]
  - CONDITION AGGRAVATED [None]
  - CONFUSIONAL STATE [None]
  - DISORIENTATION [None]
  - DIZZINESS [None]
  - DRUG INEFFECTIVE [None]
  - DRY EYE [None]
  - DRY SKIN [None]
  - DYSSOMNIA [None]
  - FATIGUE [None]
  - GASTROINTESTINAL DISORDER [None]
  - HAEMATOCHEZIA [None]
  - HEADACHE [None]
  - HEPATOCELLULAR DAMAGE [None]
  - HEPATOMEGALY [None]
  - HERPES SIMPLEX [None]
  - INJURY [None]
  - INSOMNIA [None]
  - JOINT STIFFNESS [None]
  - LIGAMENT CALCIFICATION [None]
  - LIP DRY [None]
  - LIVER DISORDER [None]
  - METRORRHAGIA [None]
  - MORBID THOUGHTS [None]
  - MYALGIA [None]
  - MYOCLONUS [None]
  - NECK PAIN [None]
  - OTITIS MEDIA [None]
  - PAIN [None]
  - PARAESTHESIA [None]
  - PARALYSIS [None]
  - PARANOIA [None]
  - PHARMACEUTICAL PRODUCT COMPLAINT [None]
  - PHARYNGITIS [None]
  - POLYARTHRITIS [None]
  - POOR QUALITY DRUG ADMINISTERED [None]
  - PROTEIN TOTAL INCREASED [None]
  - RAPID EYE MOVEMENTS SLEEP ABNORMAL [None]
  - RECTAL HAEMORRHAGE [None]
  - ROAD TRAFFIC ACCIDENT [None]
  - SLEEP TERROR [None]
  - SYNOVITIS [None]
  - TENDON CALCIFICATION [None]
  - TONSILLITIS [None]
  - UPPER RESPIRATORY TRACT INFECTION [None]
